FAERS Safety Report 15571082 (Version 1)
Quarter: 2018Q4

REPORT INFORMATION
  Report Type: Spontaneous
  Country: SE (occurrence: SE)
  Receive Date: 20181031
  Receipt Date: 20181031
  Transmission Date: 20190205
  Serious: Yes (Disabling, Other)
  Sender: FDA-Public Use
  Company Number: SE-PFIZER INC-2018441472

PATIENT
  Age: 62 Year
  Sex: Female

DRUGS (5)
  1. BONDRONAT (IBRANDRONIC ACID) [Suspect]
     Active Substance: IBANDRONIC ACID
     Indication: BREAST CANCER METASTATIC
     Dosage: 50 MG, UNK
     Dates: start: 20121130, end: 20130107
  2. PAMIDRONATDINATRIUM PFIZER [Suspect]
     Active Substance: PAMIDRONATE DISODIUM
     Indication: METASTASES TO BONE
     Dosage: 9 MG/ML, UNK
     Dates: start: 20130107, end: 20130402
  3. ZOLEDRONIC ACID MEDAC [Suspect]
     Active Substance: ZOLEDRONIC ACID
     Indication: PROPHYLAXIS
     Dosage: 4 MG/100ML, EVERY 3 MONTHS
     Route: 042
     Dates: start: 20131125
  4. BONDRONAT (IBRANDRONIC ACID) [Suspect]
     Active Substance: IBANDRONIC ACID
     Indication: METASTASES TO BONE
  5. PAMIDRONATDINATRIUM PFIZER [Suspect]
     Active Substance: PAMIDRONATE DISODIUM
     Indication: BREAST CANCER METASTATIC
     Dosage: 6 MG/ML, UNK
     Dates: start: 20130403, end: 20131125

REACTIONS (3)
  - Osteonecrosis of jaw [Not Recovered/Not Resolved]
  - Drug ineffective [Not Recovered/Not Resolved]
  - Pathological fracture [Not Recovered/Not Resolved]

NARRATIVE: CASE EVENT DATE: 20170523
